FAERS Safety Report 17192610 (Version 1)
Quarter: 2019Q4

REPORT INFORMATION
  Report Type: Spontaneous
  Country: JP (occurrence: JP)
  Receive Date: 20191223
  Receipt Date: 20191223
  Transmission Date: 20200122
  Serious: Yes (Death, Disabling)
  Sender: FDA-Public Use
  Company Number: JP-JNJFOC-20191043594

PATIENT
  Age: 84 Year
  Sex: Male
  Weight: 49.6 kg

DRUGS (5)
  1. EXCELASE [Concomitant]
     Active Substance: PANCRELIPASE
     Dosage: DAILY DOSE .8 G
     Route: 048
     Dates: start: 20080530
  2. GASTER [Concomitant]
     Active Substance: FAMOTIDINE
     Dosage: DAILY DOSE 20 MG
     Route: 048
     Dates: start: 20010207
  3. ARTIST [Concomitant]
     Active Substance: CARVEDILOL
     Dosage: DAILY DOSE 2.5 MG
     Dates: start: 20150721
  4. AMLODIN [Concomitant]
     Active Substance: AMLODIPINE BESYLATE
     Dosage: DAILY DOSE 5 MG
     Route: 048
     Dates: start: 20140625
  5. RIVAROXABAN [Suspect]
     Active Substance: RIVAROXABAN
     Indication: ATRIAL FIBRILLATION
     Dosage: 10 MG, QD
     Route: 048
     Dates: start: 20140426

REACTIONS (3)
  - Disuse syndrome [Unknown]
  - Cerebral haemorrhage [Recovered/Resolved with Sequelae]
  - Pneumonia [Fatal]

NARRATIVE: CASE EVENT DATE: 20160725
